FAERS Safety Report 9063754 (Version 1)
Quarter: 2013Q1

REPORT INFORMATION
  Report Type: Report from Study
  Country: CN (occurrence: CN)
  Receive Date: 20130213
  Receipt Date: 20130213
  Transmission Date: 20140127
  Serious: Yes (Death)
  Sender: FDA-Public Use
  Company Number: CN-ASTELLAS-2013JP001378

PATIENT
  Sex: Male

DRUGS (1)
  1. TACROLIMUS CAPSULES [Suspect]
     Indication: BONE MARROW TRANSPLANT
     Dosage: 2.5 MG, BID
     Route: 048
     Dates: start: 20051019

REACTIONS (2)
  - Off label use [Unknown]
  - Death [Fatal]
